FAERS Safety Report 24757358 (Version 1)
Quarter: 2024Q4

REPORT INFORMATION
  Report Type: Report from Study
  Country: US (occurrence: US)
  Receive Date: 20241220
  Receipt Date: 20241220
  Transmission Date: 20250114
  Serious: Yes (Hospitalization)
  Sender: TAKEDA
  Company Number: US-TAKEDA-20130916CINRY4991

PATIENT
  Age: 43 Year
  Sex: Female

DRUGS (3)
  1. HUMAN C1-ESTERASE INHIBITOR [Suspect]
     Active Substance: HUMAN C1-ESTERASE INHIBITOR
     Indication: Hereditary angioedema
     Dosage: 1000 INTERNATIONAL UNIT
  2. HUMAN C1-ESTERASE INHIBITOR [Suspect]
     Active Substance: HUMAN C1-ESTERASE INHIBITOR
     Dosage: 1000 INTERNATIONAL UNIT
  3. HUMAN C1-ESTERASE INHIBITOR [Suspect]
     Active Substance: HUMAN C1-ESTERASE INHIBITOR

REACTIONS (4)
  - Heavy menstrual bleeding [Recovered/Resolved]
  - Menstrual disorder [Recovered/Resolved]
  - Product dose omission issue [Recovered/Resolved]
  - Hereditary angioedema [Recovering/Resolving]

NARRATIVE: CASE EVENT DATE: 20130915
